FAERS Safety Report 16396694 (Version 1)
Quarter: 2019Q2

REPORT INFORMATION
  Report Type: Spontaneous
  Country: US (occurrence: US)
  Receive Date: 20190606
  Receipt Date: 20190606
  Transmission Date: 20190711
  Serious: No
  Sender: FDA-Public Use
  Company Number: US-ROCHE-2220459

PATIENT
  Age: 27 Year

DRUGS (1)
  1. VALCYTE [Suspect]
     Active Substance: VALGANCICLOVIR HYDROCHLORIDE
     Indication: PRODUCT USED FOR UNKNOWN INDICATION
     Route: 065
     Dates: start: 20181118

REACTIONS (5)
  - Eye pain [Recovering/Resolving]
  - Swelling [Not Recovered/Not Resolved]
  - Eye swelling [Recovering/Resolving]
  - Vision blurred [Unknown]
  - Malaise [Unknown]
